FAERS Safety Report 23692423 (Version 2)
Quarter: 2024Q2

REPORT INFORMATION
  Report Type: Report from Study
  Country: DE (occurrence: DE)
  Receive Date: 20240401
  Receipt Date: 20240603
  Transmission Date: 20240716
  Serious: No
  Sender: FDA-Public Use
  Company Number: DE-TAKEDA-2024TUS027971

PATIENT
  Age: 25 Year
  Sex: Female

DRUGS (12)
  1. TEDUGLUTIDE [Suspect]
     Active Substance: TEDUGLUTIDE
     Indication: Short-bowel syndrome
     Dosage: 2.4 MILLIGRAM, QD
     Route: 042
     Dates: start: 20210805, end: 20210824
  2. TEDUGLUTIDE [Suspect]
     Active Substance: TEDUGLUTIDE
     Indication: Short-bowel syndrome
     Dosage: 2.4 MILLIGRAM, QD
     Route: 042
     Dates: start: 20210805, end: 20210824
  3. TEDUGLUTIDE [Suspect]
     Active Substance: TEDUGLUTIDE
     Indication: Short-bowel syndrome
     Dosage: 2.4 MILLIGRAM, QD
     Route: 042
     Dates: start: 20210805, end: 20210824
  4. TEDUGLUTIDE [Suspect]
     Active Substance: TEDUGLUTIDE
     Indication: Short-bowel syndrome
     Dosage: 2.4 MILLIGRAM, QD
     Route: 042
     Dates: start: 20210805, end: 20210824
  5. TEDUGLUTIDE [Suspect]
     Active Substance: TEDUGLUTIDE
     Dosage: 2.4 MILLIGRAM, 4/WEEK
     Route: 042
     Dates: start: 20210825, end: 202206
  6. TEDUGLUTIDE [Suspect]
     Active Substance: TEDUGLUTIDE
     Dosage: 2.4 MILLIGRAM, 4/WEEK
     Route: 042
     Dates: start: 20210825, end: 202206
  7. TEDUGLUTIDE [Suspect]
     Active Substance: TEDUGLUTIDE
     Dosage: 2.4 MILLIGRAM, 4/WEEK
     Route: 042
     Dates: start: 20210825, end: 202206
  8. TEDUGLUTIDE [Suspect]
     Active Substance: TEDUGLUTIDE
     Dosage: 2.4 MILLIGRAM, 4/WEEK
     Route: 042
     Dates: start: 20210825, end: 202206
  9. TAZOBACTAM [Concomitant]
     Active Substance: TAZOBACTAM
     Indication: Device related infection
     Dosage: 0.5 GRAM, TID
     Route: 042
     Dates: start: 20240102, end: 20240103
  10. PIPERACILLIN [Concomitant]
     Active Substance: PIPERACILLIN
     Indication: Device related infection
     Dosage: 4 GRAM, TID
     Route: 042
     Dates: start: 20240102, end: 20240103
  11. FLUCLOXACILLIN [Concomitant]
     Active Substance: FLUCLOXACILLIN
     Indication: Device related infection
     Dosage: 2 GRAM, QID
     Route: 042
     Dates: start: 20240103, end: 20240124
  12. POTASSIUM CHLORIDE [Concomitant]
     Active Substance: POTASSIUM CHLORIDE
     Indication: Hypokalaemia
     Dosage: 600 MILLIGRAM, BID
     Route: 048
     Dates: start: 20240102, end: 20240125

REACTIONS (3)
  - Anaemia [Recovered/Resolved]
  - Hyponatraemia [Recovered/Resolved]
  - Foreign body [Recovered/Resolved]

NARRATIVE: CASE EVENT DATE: 20240101
